FAERS Safety Report 8139781-2 (Version None)
Quarter: 2012Q1

REPORT INFORMATION
  Report Type: 
  Country: None (occurrence: None)
  Receive Date: 20120215
  Receipt Date: 20120206
  Transmission Date: 20120608
  Serious: Yes (Other)
  Sender: FDA-Public Use
  Company Number: BR-ASTRAZENECA-2012SE08623

PATIENT
  Age: 80 Year
  Sex: Female
  Weight: 85 kg

DRUGS (3)
  1. OMEPRAZOLE [Suspect]
     Indication: GASTRIC ULCER
     Route: 048
  2. ATACAND HCT [Suspect]
     Dosage: 16/12.5 MG DAILY
     Route: 048
  3. ATACAND HCT [Suspect]
     Indication: HYPERTENSION
     Dosage: 16/12.5 MG TWO TIMES A DAY
     Route: 048
     Dates: end: 20120206

REACTIONS (7)
  - DIARRHOEA [None]
  - ASTHENIA [None]
  - INAPPROPRIATE SCHEDULE OF DRUG ADMINISTRATION [None]
  - ANAEMIA [None]
  - DIZZINESS [None]
  - URINE OUTPUT INCREASED [None]
  - THROMBOSIS [None]
